FAERS Safety Report 7174077-7 (Version None)
Quarter: 2010Q4

REPORT INFORMATION
  Report Type: 
  Country: None (occurrence: None)
  Receive Date: 20101219
  Receipt Date: 20100317
  Transmission Date: 20110411
  Serious: No
  Sender: FDA-Public Use
  Company Number: US-AMGEN-KDL400474

PATIENT

DRUGS (2)
  1. ENBREL [Suspect]
     Indication: JUVENILE ARTHRITIS
     Dosage: 50 MG, QWK
     Route: 058
     Dates: start: 20020401
  2. HYDROXYCHLOROQUINE [Concomitant]
     Dosage: 400 MG, QD
     Dates: start: 20091211

REACTIONS (9)
  - ARTHRITIS [None]
  - BACK PAIN [None]
  - DIARRHOEA [None]
  - FALL [None]
  - HYPERTENSION [None]
  - JOINT EFFUSION [None]
  - JOINT INJURY [None]
  - MIGRAINE [None]
  - NECK PAIN [None]
